FAERS Safety Report 11620017 (Version 1)
Quarter: 2015Q4

REPORT INFORMATION
  Report Type: Spontaneous
  Country: GB (occurrence: GB)
  Receive Date: 20151012
  Receipt Date: 20151012
  Transmission Date: 20160304
  Serious: Yes (Other)
  Sender: FDA-Public Use
  Company Number: GB-AUROBINDO-AUR-APL-2015-08981

PATIENT
  Sex: Male

DRUGS (3)
  1. RISPERIDONE FILM-COATED TABLETS 4 MG [Suspect]
     Active Substance: RISPERIDONE
     Indication: PRODUCT USED FOR UNKNOWN INDICATION
     Dosage: 4 MG, ONCE A DAY
     Route: 048
     Dates: end: 20150921
  2. XEPLION                            /05724801/ [Suspect]
     Active Substance: PALIPERIDONE PALMITATE
     Indication: PRODUCT USED FOR UNKNOWN INDICATION
     Dosage: 100 MG
     Route: 065
     Dates: start: 20150923
  3. XEPLION                            /05724801/ [Suspect]
     Active Substance: PALIPERIDONE PALMITATE
     Dosage: 100 MG, UNK
     Dates: end: 20150703

REACTIONS (1)
  - Hallucination [Recovered/Resolved]

NARRATIVE: CASE EVENT DATE: 20150803
